FAERS Safety Report 7272504-8 (Version None)
Quarter: 2011Q1

REPORT INFORMATION
  Report Type: 
  Country: None (occurrence: None)
  Receive Date: 20110203
  Receipt Date: 20110127
  Transmission Date: 20110831
  Serious: Yes (Death, Hospitalization)
  Sender: FDA-Public Use
  Company Number: JP-ROCHE-755358

PATIENT
  Age: 50 Year
  Sex: Male
  Weight: 68 kg

DRUGS (5)
  1. RIBAVIRIN [Suspect]
     Indication: HEPATITIS C
     Route: 048
     Dates: start: 20100330, end: 20100506
  2. VANIPREVIR [Suspect]
     Dosage: FORM: PERORAL AGENT, DOSAGE IS UNCERTAIN
     Route: 048
     Dates: start: 20100330, end: 20100427
  3. PEGINTERFERON ALFA-2A [Suspect]
     Indication: HEPATITIS C
     Dosage: DOSE DECREASED
     Route: 058
     Dates: start: 20100330, end: 20101006
  4. RIBAVIRIN [Suspect]
     Route: 048
     Dates: start: 20100508
  5. PEGINTERFERON ALFA-2A [Suspect]
     Route: 058
     Dates: start: 20101012

REACTIONS (4)
  - RENAL FAILURE ACUTE [None]
  - BACTERIAL INFECTION [None]
  - INSOMNIA [None]
  - DISSEMINATED INTRAVASCULAR COAGULATION [None]
